FAERS Safety Report 7788554-9 (Version None)
Quarter: 2011Q3

REPORT INFORMATION
  Report Type: 
  Country: None (occurrence: None)
  Receive Date: 20110930
  Receipt Date: 20110920
  Transmission Date: 20111222
  Serious: Yes (Other)
  Sender: FDA-Public Use
  Company Number: ES-JNJFOC-20110908778

PATIENT
  Age: 33 Year
  Sex: Female

DRUGS (1)
  1. REMICADE [Suspect]
     Indication: HIDRADENITIS
     Dosage: EVERY 42 DAYS
     Route: 042
     Dates: start: 20070810, end: 20110718

REACTIONS (3)
  - DYSPNOEA [None]
  - BACK PAIN [None]
  - PRESYNCOPE [None]
